FAERS Safety Report 9283362 (Version 2)
Quarter: 2013Q3

REPORT INFORMATION
  Report Type: Spontaneous
  Country: JP (occurrence: None)
  Receive Date: 20130506
  Receipt Date: 20130703
  Transmission Date: 20140515
  Serious: Yes (Congenital Anomaly)
  Sender: FDA-Public Use
  Company Number: 2013S1001032

PATIENT
  Age: 0 Day
  Sex: Male
  Weight: 3.3 kg

DRUGS (1)
  1. LIVALO [Suspect]
     Indication: TYPE IIA HYPERLIPIDAEMIA
     Route: 064

REACTIONS (3)
  - Talipes [None]
  - Maternal drugs affecting foetus [None]
  - Caesarean section [None]
